FAERS Safety Report 8806213 (Version 1)
Quarter: 2012Q4

REPORT INFORMATION
  Report Type: 
  Country: US (occurrence: US)
  Receive Date: 20120925
  Receipt Date: 20120925
  Transmission Date: 20130627
  Serious: Yes (Other)
  Sender: FDA-Public Use
  Company Number: PHEH2012US018466

PATIENT
  Sex: Female

DRUGS (6)
  1. TEGRETOL [Suspect]
     Dosage: 200 mg, TID
     Route: 048
     Dates: start: 1989
  2. NEXIUM [Concomitant]
  3. IRON [Concomitant]
  4. FOLIC ACID [Concomitant]
  5. SERTRALINE [Concomitant]
  6. METHOTREXATE [Concomitant]

REACTIONS (2)
  - Colon cancer [Unknown]
  - Cardiac operation [None]
